FAERS Safety Report 8513133-5 (Version None)
Quarter: 2012Q3

REPORT INFORMATION
  Report Type: 
  Country: None (occurrence: None)
  Receive Date: 20120716
  Receipt Date: 20120705
  Transmission Date: 20120928
  Serious: Yes (Other)
  Sender: FDA-Public Use
  Company Number: US-ELI_LILLY_AND_COMPANY-US201207003727

PATIENT
  Sex: Male

DRUGS (2)
  1. COUMADIN [Concomitant]
     Indication: PRODUCT USED FOR UNKNOWN INDICATION
     Dosage: UNK
     Dates: start: 20020101
  2. FORTEO [Suspect]
     Indication: OSTEOPOROSIS
     Dosage: 20 UG, QD

REACTIONS (18)
  - INFLUENZA [None]
  - PAIN [None]
  - STAPHYLOCOCCAL INFECTION [None]
  - RENAL INJURY [None]
  - HYPERHIDROSIS [None]
  - MOOD ALTERED [None]
  - FALL [None]
  - ARTHRALGIA [None]
  - MUSCLE SPASMS [None]
  - HERPES ZOSTER [None]
  - ASTHENIA [None]
  - LOSS OF CONSCIOUSNESS [None]
  - MALAISE [None]
  - PYREXIA [None]
  - MIGRAINE [None]
  - INJECTION SITE HAEMATOMA [None]
  - FRUSTRATION [None]
  - DEMENTIA [None]
